FAERS Safety Report 8169222-0 (Version None)
Quarter: 2012Q1

REPORT INFORMATION
  Report Type: 
  Country: None (occurrence: None)
  Receive Date: 20120227
  Receipt Date: 20120216
  Transmission Date: 20120608
  Serious: Yes (Hospitalization)
  Sender: FDA-Public Use
  Company Number: US-ASTRAZENECA-2012SE07330

PATIENT
  Sex: Female

DRUGS (6)
  1. HYDROCHLOROTHIAZIDE [Concomitant]
  2. NEXIUM [Suspect]
     Indication: GASTROOESOPHAGEAL REFLUX DISEASE
     Route: 048
     Dates: end: 20110801
  3. DIAZEPAM [Concomitant]
  4. CEREBREX [Concomitant]
  5. TOPROL-XL [Concomitant]
  6. CLINDAMYCIN [Concomitant]

REACTIONS (7)
  - MALAISE [None]
  - ABDOMINAL PAIN UPPER [None]
  - COLONIC POLYP [None]
  - DRUG DOSE OMISSION [None]
  - GASTRIC POLYPS [None]
  - GASTROINTESTINAL ULCER [None]
  - GASTROOESOPHAGEAL REFLUX DISEASE [None]
